FAERS Safety Report 8139916-1 (Version None)
Quarter: 2012Q1

REPORT INFORMATION
  Report Type: 
  Country: None (occurrence: None)
  Receive Date: 20120215
  Receipt Date: 20120206
  Transmission Date: 20120608
  Serious: Yes (Other)
  Sender: FDA-Public Use
  Company Number: US-ASTRAZENECA-2012SE05027

PATIENT
  Age: 95 Year
  Sex: Male

DRUGS (3)
  1. NEXIUM [Suspect]
     Indication: GASTROOESOPHAGEAL REFLUX DISEASE
     Route: 048
  2. NEXIUM [Suspect]
     Indication: GASTRIC HAEMORRHAGE
     Route: 048
  3. NEXIUM [Suspect]
     Indication: ULCER
     Route: 048

REACTIONS (4)
  - VISUAL IMPAIRMENT [None]
  - MACULAR DEGENERATION [None]
  - ACTIVITIES OF DAILY LIVING IMPAIRED [None]
  - INAPPROPRIATE SCHEDULE OF DRUG ADMINISTRATION [None]
